FAERS Safety Report 14742111 (Version 4)
Quarter: 2018Q3

REPORT INFORMATION
  Report Type: Spontaneous
  Country: JP (occurrence: JP)
  Receive Date: 20180410
  Receipt Date: 20180726
  Transmission Date: 20181010
  Serious: Yes (Other)
  Sender: FDA-Public Use
  Company Number: JP-PFIZER INC-2018139515

PATIENT
  Age: 37 Year
  Sex: Female

DRUGS (6)
  1. LEUPLIN [Concomitant]
     Active Substance: LEUPROLIDE ACETATE
     Indication: METASTASES TO BONE
     Dosage: UNK, DAILY (11.25 DAILY)
     Route: 058
     Dates: start: 20160126, end: 20180418
  2. RANMARK [Concomitant]
     Active Substance: DENOSUMAB
     Indication: METASTASES TO BONE
     Dosage: 120 MG, DAILY
     Route: 058
     Dates: start: 20160126, end: 20180418
  3. IBRANCE [Suspect]
     Active Substance: PALBOCICLIB
     Dosage: 100 MG, 1X/DAY
     Dates: start: 20180124, end: 20180206
  4. IBRANCE [Suspect]
     Active Substance: PALBOCICLIB
     Dosage: 75 MG, 1X/DAY
     Dates: start: 20180207, end: 20180404
  5. IBRANCE [Suspect]
     Active Substance: PALBOCICLIB
     Indication: BREAST CANCER FEMALE
     Dosage: 125 MG, 1X/DAY
     Route: 048
     Dates: start: 20171228, end: 20180123
  6. FASLODEX [Concomitant]
     Active Substance: FULVESTRANT
     Indication: BREAST CANCER
     Dosage: 500 MG, DAILY
     Route: 030
     Dates: start: 20171228, end: 20180320

REACTIONS (2)
  - Pneumonia bacterial [Recovering/Resolving]
  - Neoplasm progression [Recovering/Resolving]

NARRATIVE: CASE EVENT DATE: 20180404
